FAERS Safety Report 10169258 (Version 1)
Quarter: 2014Q2

REPORT INFORMATION
  Report Type: Spontaneous
  Country: US (occurrence: US)
  Receive Date: 20140513
  Receipt Date: 20140513
  Transmission Date: 20141212
  Serious: Yes (Death)
  Sender: FDA-Public Use
  Company Number: US-AMGEN INC.-USASP2014033969

PATIENT
  Age: 78 Year
  Sex: Female

DRUGS (5)
  1. PROLIA [Suspect]
     Indication: OSTEOPOROSIS
     Dosage: 60 MG/ML, Q6MO
     Route: 065
     Dates: start: 20131024
  2. TYLENOL                            /00020001/ [Concomitant]
     Dosage: 1000 MG, Q4H AS NEEDED
     Route: 065
  3. SOLUMEDROL [Concomitant]
     Dosage: 125 MG, UNK
     Route: 042
  4. BENADRYL                           /00000402/ [Concomitant]
     Dosage: 50 MG, AS NECESSARY
     Route: 042
  5. EPINEPHRINE [Concomitant]
     Dosage: 1000:0.5 MG SQ, AS NECESSARY
     Route: 030

REACTIONS (1)
  - Death [Fatal]
